FAERS Safety Report 20691825 (Version 2)
Quarter: 2022Q2

REPORT INFORMATION
  Report Type: Spontaneous
  Country: IT (occurrence: IT)
  Receive Date: 20220408
  Receipt Date: 20220414
  Transmission Date: 20220721
  Serious: Yes (Death, Other)
  Sender: FDA-Public Use
  Company Number: IT-GILEAD-2022-0576731

PATIENT
  Age: 47 Year
  Sex: Female

DRUGS (3)
  1. YESCARTA [Suspect]
     Active Substance: AXICABTAGENE CILOLEUCEL
     Indication: B-cell lymphoma
     Dosage: UNK
     Route: 042
     Dates: start: 20211021, end: 20211021
  2. YESCARTA [Suspect]
     Active Substance: AXICABTAGENE CILOLEUCEL
     Indication: Diffuse large B-cell lymphoma refractory
  3. HEPARIN [Concomitant]
     Active Substance: HEPARIN SODIUM
     Indication: Prophylaxis

REACTIONS (1)
  - Disease progression [Fatal]

NARRATIVE: CASE EVENT DATE: 20211116
